FAERS Safety Report 11149413 (Version 1)
Quarter: 2015Q2

REPORT INFORMATION
  Report Type: Spontaneous
  Country: US (occurrence: US)
  Receive Date: 20150529
  Receipt Date: 20150529
  Transmission Date: 20150821
  Serious: Yes (Other)
  Sender: FDA-Public Use
  Company Number: US-BAYER-2015-271518

PATIENT
  Age: 60 Year
  Sex: Female

DRUGS (2)
  1. TUMS [Suspect]
     Active Substance: CALCIUM CARBONATE
     Indication: DYSPEPSIA
     Dosage: 10 PILLS 3-4 TIMES A DAY
  2. ACETYLSALICYLIC ACID (} 100 MG) [Suspect]
     Active Substance: ASPIRIN
     Indication: ARTHRITIS
     Dosage: FREQUENT HIGH DOSES

REACTIONS (3)
  - Milk-alkali syndrome [Recovered/Resolved]
  - Microcytic anaemia [None]
  - Duodenal ulcer [None]
